FAERS Safety Report 8838583 (Version 3)
Quarter: 2013Q1

REPORT INFORMATION
  Report Type: Report from Study
  Country: JP (occurrence: JP)
  Receive Date: 20121012
  Receipt Date: 20130315
  Transmission Date: 20140127
  Serious: Yes (Hospitalization)
  Sender: FDA-Public Use
  Company Number: JP-ABBOTT-12P-087-0992823-00

PATIENT
  Age: 63 Year
  Sex: Male

DRUGS (10)
  1. LEUPRORELIN ACETATE [Suspect]
     Indication: SPINAL MUSCULAR ATROPHY
     Route: 058
     Dates: start: 20120808, end: 20120808
  2. BUFFERIN A [Concomitant]
     Indication: ISCHAEMIC HEART DISEASE PROPHYLAXIS
     Route: 048
     Dates: start: 199809, end: 20120926
  3. TANATRIL [Concomitant]
     Indication: HYPERTENSION
     Route: 048
     Dates: start: 20091126
  4. LIVALO [Concomitant]
     Indication: HYPERLIPIDAEMIA
     Route: 048
     Dates: start: 20100518
  5. LANTUS [Concomitant]
     Indication: DIABETES MELLITUS
     Route: 058
     Dates: start: 20110609
  6. PARIET [Concomitant]
     Indication: GASTRITIS
     Route: 048
     Dates: start: 20070703
  7. RIVOTRIL [Concomitant]
     Indication: SPINAL MUSCULAR ATROPHY
     Route: 048
     Dates: start: 20070703
  8. MAGMITT [Concomitant]
     Indication: CONSTIPATION
     Route: 048
     Dates: start: 20120612
  9. MOHRUS [Concomitant]
     Indication: SPINAL MUSCULAR ATROPHY
     Dosage: OPTIMAL DOSE
     Route: 062
     Dates: start: 2010
  10. NOVORAPID [Concomitant]
     Indication: DIABETES MELLITUS
     Route: 058
     Dates: start: 20120718

REACTIONS (1)
  - Intervertebral disc protrusion [Recovering/Resolving]
